FAERS Safety Report 7688087-4 (Version None)
Quarter: 2011Q3

REPORT INFORMATION
  Report Type: 
  Country: None (occurrence: None)
  Receive Date: 20110817
  Receipt Date: 20110810
  Transmission Date: 20111222
  Serious: Yes (Hospitalization)
  Sender: FDA-Public Use
  Company Number: JP-BRISTOL-MYERS SQUIBB COMPANY-15973118

PATIENT
  Age: 1 Day
  Sex: Male
  Weight: 4 kg

DRUGS (1)
  1. ABILIFY [Suspect]
     Route: 064
     Dates: start: 20100701

REACTIONS (2)
  - HYPOGLYCAEMIA NEONATAL [None]
  - C-REACTIVE PROTEIN INCREASED [None]
